FAERS Safety Report 6211971-5 (Version None)
Quarter: 2009Q2

REPORT INFORMATION
  Report Type: 
  Country: None (occurrence: None)
  Receive Date: 20090529
  Receipt Date: 20090518
  Transmission Date: 20091009
  Serious: Yes (Other)
  Sender: FDA-Public Use
  Company Number: 2009AP002011

PATIENT
  Age: 48 Year

DRUGS (12)
  1. PREDNISOLONE [Suspect]
     Indication: IMMUNOSUPPRESSION
     Dosage: 5 MG;QD
  2. MYCOPHENOLATE MOFETIL [Suspect]
     Indication: IMMUNOSUPPRESSION
     Dosage: QD
  3. TACROLIMUS [Suspect]
     Indication: IMMUNOSUPPRESSION
  4. ANTI-THYMOCYTE GLOBULIN NOS [Suspect]
     Indication: IMMUNOSUPPRESSION
     Dosage: 1.5 MG/KG
  5. METHYLPREDNISOLONE [Suspect]
     Indication: IMMUNOSUPPRESSION
     Dosage: 500 MG ; 20 MG
  6. SIROLIMUS [Suspect]
     Indication: IMMUNOSUPPRESSION
  7. GANCICLOVIR [Suspect]
     Indication: ANTIBIOTIC PROPHYLAXIS
     Dosage: 10 MG/KG;QD;IV
     Route: 042
  8. GANCICLOVIR [Suspect]
     Dosage: 3 GM;QD;PO
     Route: 048
  9. PIPERACILLIN [Concomitant]
  10. TAZOBACTAM [Concomitant]
  11. SULFAMETHOXAZOLE AND TRIMETHOPRIM [Concomitant]
  12. TRIMETHOPRIM [Concomitant]

REACTIONS (5)
  - CYTOMEGALOVIRUS INFECTION [None]
  - HYPERLIPIDAEMIA [None]
  - NASOPHARYNGITIS [None]
  - NEPHROPATHY TOXIC [None]
  - TRANSPLANT REJECTION [None]
